FAERS Safety Report 24210096 (Version 1)
Quarter: 2024Q3

REPORT INFORMATION
  Report Type: Spontaneous
  Country: US (occurrence: None)
  Receive Date: 20240813
  Receipt Date: 20240813
  Transmission Date: 20241017
  Serious: Yes (Life-Threatening, Disabling, Other)
  Sender: Public
  Company Number: None

PATIENT
  Age: 66 Year
  Sex: Female
  Weight: 49.5 kg

DRUGS (6)
  1. KEYTRUDA [Suspect]
     Active Substance: PEMBROLIZUMAB
     Indication: Malignant melanoma
     Dates: start: 20230212, end: 20230915
  2. PREDNISONE [Concomitant]
     Active Substance: PREDNISONE
  3. HYDRAICORISONE [Concomitant]
  4. ROLATOR [Concomitant]
  5. ALPRAZOLAM [Concomitant]
     Active Substance: ALPRAZOLAM
  6. MULTI VITIMINES GUMMIES [Concomitant]

REACTIONS (13)
  - Feeling abnormal [None]
  - Near death experience [None]
  - Wheelchair user [None]
  - Hypophagia [None]
  - Gastrointestinal disorder [None]
  - Death of companion [None]
  - Weight decreased [None]
  - Loss of personal independence in daily activities [None]
  - Visual impairment [None]
  - Skin ulcer [None]
  - Pruritus [None]
  - Vertigo [None]
  - Legal problem [None]

NARRATIVE: CASE EVENT DATE: 20231010
